FAERS Safety Report 16572529 (Version 1)
Quarter: 2019Q3

REPORT INFORMATION
  Report Type: Spontaneous
  Country: DK (occurrence: DK)
  Receive Date: 20190715
  Receipt Date: 20190715
  Transmission Date: 20191004
  Serious: Yes (Other)
  Sender: FDA-Public Use
  Company Number: DK-MYLANLABS-2019M1064816

PATIENT
  Age: 25 Year
  Sex: Female

DRUGS (5)
  1. INVEGA [Concomitant]
     Active Substance: PALIPERIDONE
     Indication: SCHIZOPHRENIA
     Dosage: 6 MILLIGRAM STYRKE: UKENDT.
     Route: 048
     Dates: start: 20081105, end: 20090209
  2. OLANZAPINE. [Suspect]
     Active Substance: OLANZAPINE
     Indication: SCHIZOPHRENIA
     Dosage: UNK STYRKE: UKENDT.
     Route: 048
     Dates: start: 2008
  3. CIPRALEX [Concomitant]
     Active Substance: ESCITALOPRAM OXALATE
     Indication: ANXIETY
     Dosage: 20 MILLIGRAM STYRKE: 20 MG. DOSIS: UKENDT.
     Route: 048
     Dates: start: 20070514, end: 20170323
  4. CODEINE [Concomitant]
     Active Substance: CODEINE
     Indication: PAIN
     Dosage: 200 MILLIGRAM, QD STYRKE: 25 MG.
     Route: 048
     Dates: start: 20160401
  5. ASACOL [Concomitant]
     Active Substance: MESALAMINE
     Indication: GASTROINTESTINAL INFECTION
     Dosage: 2400 MILLIGRAM, QD STYRKE: 800 MG.
     Route: 048
     Dates: start: 20170421

REACTIONS (19)
  - Atrial fibrillation [Recovered/Resolved]
  - Dry mouth [Not Recovered/Not Resolved]
  - Infection susceptibility increased [Not Recovered/Not Resolved]
  - Back pain [Unknown]
  - Generalised oedema [Not Recovered/Not Resolved]
  - Hepatic steatosis [Not Recovered/Not Resolved]
  - Pruritus [Not Recovered/Not Resolved]
  - Anaemia [Not Recovered/Not Resolved]
  - Myalgia [Not Recovered/Not Resolved]
  - Weight increased [Not Recovered/Not Resolved]
  - Fatigue [Not Recovered/Not Resolved]
  - Body temperature fluctuation [Not Recovered/Not Resolved]
  - Palpitations [Unknown]
  - Diplopia [Not Recovered/Not Resolved]
  - Memory impairment [Not Recovered/Not Resolved]
  - Dyskinesia [Recovered/Resolved]
  - Pain [Not Recovered/Not Resolved]
  - Arthralgia [Not Recovered/Not Resolved]
  - Pyrexia [Not Recovered/Not Resolved]

NARRATIVE: CASE EVENT DATE: 2008
